FAERS Safety Report 18245111 (Version 2)
Quarter: 2020Q4

REPORT INFORMATION
  Report Type: Spontaneous
  Country: US (occurrence: US)
  Receive Date: 20200908
  Receipt Date: 20201008
  Transmission Date: 20210113
  Serious: No
  Sender: FDA-Public Use
  Company Number: US-ASTRAZENECA-2020SF13616

PATIENT
  Age: 23231 Day
  Sex: Female
  Weight: 108.9 kg

DRUGS (2)
  1. BYDUREON BCISE [Suspect]
     Active Substance: EXENATIDE
     Indication: TYPE 2 DIABETES MELLITUS
     Route: 065
     Dates: start: 20200823
  2. BYDUREON [Suspect]
     Active Substance: EXENATIDE
     Indication: TYPE 2 DIABETES MELLITUS
     Route: 065
     Dates: start: 202007

REACTIONS (8)
  - Device leakage [Unknown]
  - Drug delivery system issue [Unknown]
  - Injection site pain [Unknown]
  - Intentional device misuse [Unknown]
  - Nausea [Recovered/Resolved]
  - Injection site mass [Not Recovered/Not Resolved]
  - Injection site indentation [Unknown]
  - Circumstance or information capable of leading to medication error [Unknown]

NARRATIVE: CASE EVENT DATE: 20200830
